FAERS Safety Report 20802880 (Version 1)
Quarter: 2022Q2

REPORT INFORMATION
  Report Type: Report from Study
  Country: US (occurrence: US)
  Receive Date: 20220509
  Receipt Date: 20220509
  Transmission Date: 20220721
  Serious: Yes (Other)
  Sender: FDA-Public Use
  Company Number: US-TAKEDA-2022TUS000596

PATIENT
  Age: 18 Year
  Sex: Male

DRUGS (1)
  1. HUMAN IMMUNOGLOBULIN G [Suspect]
     Active Substance: HUMAN IMMUNOGLOBULIN G
     Indication: Primary immunodeficiency syndrome
     Dosage: 10 GRAM, 1/WEEK
     Route: 065

REACTIONS (4)
  - Deafness [Unknown]
  - Chest discomfort [Unknown]
  - Multimorbidity [Unknown]
  - Cutis verticis gyrata [Unknown]

NARRATIVE: CASE EVENT DATE: 20220104
